FAERS Safety Report 4962464-4 (Version None)
Quarter: 2006Q1

REPORT INFORMATION
  Report Type: 
  Country: None (occurrence: None)
  Receive Date: 20060201
  Receipt Date: 20051107
  Transmission Date: 20060701
  Serious: No
  Sender: FDA-Public Use
  Company Number: 2005PV004303

PATIENT
  Age: 52 Year
  Sex: Male
  Weight: 74.3899 kg

DRUGS (5)
  1. BYETTA [Suspect]
     Indication: DIABETES MELLITUS NON-INSULIN-DEPENDENT
     Dosage: 5 MCG BID SC ; 10 MCG BID SC
     Route: 058
     Dates: start: 20050920, end: 20051019
  2. BYETTA [Suspect]
     Indication: DIABETES MELLITUS NON-INSULIN-DEPENDENT
     Dosage: 5 MCG BID SC ; 10 MCG BID SC
     Route: 058
     Dates: start: 20051020
  3. GLUCOTROL [Concomitant]
  4. GLUCOPHAGE [Concomitant]
  5. INSULIN [Concomitant]

REACTIONS (3)
  - DIZZINESS [None]
  - NAUSEA [None]
  - WEIGHT DECREASED [None]
